FAERS Safety Report 8409634-0 (Version None)
Quarter: 2012Q2

REPORT INFORMATION
  Report Type: 
  Country: None (occurrence: None)
  Receive Date: 20120529
  Receipt Date: 20120515
  Transmission Date: 20120825
  Serious: Yes (Death)
  Sender: FDA-Public Use
  Company Number: 1296072

PATIENT
  Age: 49 Year
  Sex: Male

DRUGS (8)
  1. METHOTREXATE [Suspect]
     Indication: ACUTE PROMYELOCYTIC LEUKAEMIA
     Dosage: 15 MG/M^2 PER WEEK
  2. FLUDARABINE PHOSPHATE [Suspect]
     Indication: REFRACTORY ANAEMIA
  3. MITOXANTRONE HYDROCHLORIDE [Suspect]
     Indication: ACUTE PROMYELOCYTIC LEUKAEMIA
     Dosage: 10 MG/M 2 MILLIGRAM(S)/SQ. METER
  4. MERCAPTOPURINE [Suspect]
     Indication: ACUTE PROMYELOCYTIC LEUKAEMIA
     Dosage: 50 MG/M 2 MILLIGRAM(S)/SQ. METER
  5. (GRANULOCYTE COLONY STIMULATING FACTOR) [Suspect]
     Indication: REFRACTORY ANAEMIA
  6. IDARUBICIN HCL [Suspect]
     Indication: ACUTE PROMYELOCYTIC LEUKAEMIA
     Dosage: 12 MG/M 2 MILLIGRAM(S)/SQ. METER
  7. CYTARABINE [Suspect]
     Indication: REFRACTORY ANAEMIA
  8. TRETINOIN [Suspect]
     Indication: ACUTE PROMYELOCYTIC LEUKAEMIA
     Dosage: 45 MG/M 2 MILLIGRAM(S)/SQ. METER

REACTIONS (5)
  - ACUTE MYELOID LEUKAEMIA [None]
  - STEM CELL TRANSPLANT [None]
  - CHROMOSOME ANALYSIS ABNORMAL [None]
  - REFRACTORY ANAEMIA WITH AN EXCESS OF BLASTS [None]
  - POST PROCEDURAL COMPLICATION [None]
